FAERS Safety Report 8282830-1 (Version None)
Quarter: 2012Q2

REPORT INFORMATION
  Report Type: 
  Country: None (occurrence: None)
  Receive Date: 20120413
  Receipt Date: 20120411
  Transmission Date: 20120825
  Serious: Yes (Other)
  Sender: FDA-Public Use
  Company Number: PHHY2012BE006865

PATIENT
  Sex: Female

DRUGS (1)
  1. GILENYA [Suspect]
     Dosage: 0.5 MG, DAILY
     Dates: start: 20111220

REACTIONS (3)
  - FATIGUE [None]
  - MITRAL VALVE INCOMPETENCE [None]
  - BLOOD PRESSURE INCREASED [None]
